FAERS Safety Report 8057182-2 (Version None)
Quarter: 2012Q1

REPORT INFORMATION
  Report Type: 
  Country: None (occurrence: None)
  Receive Date: 20120119
  Receipt Date: 20120111
  Transmission Date: 20120608
  Serious: Yes (Other)
  Sender: FDA-Public Use
  Company Number: PHHY2012BR002570

PATIENT
  Sex: Female

DRUGS (2)
  1. TEGRETOL [Suspect]
     Dosage: UNK UKN, UNK
  2. TRILEPTAL [Suspect]
     Dosage: UNK UKN, UNK
     Dates: start: 20100901

REACTIONS (2)
  - DRUG INEFFECTIVE [None]
  - PETIT MAL EPILEPSY [None]
